FAERS Safety Report 9437858 (Version 1)
Quarter: 2013Q3

REPORT INFORMATION
  Report Type: Spontaneous
  Country: US (occurrence: US)
  Receive Date: 20130802
  Receipt Date: 20130802
  Transmission Date: 20140515
  Serious: No
  Sender: FDA-Public Use
  Company Number: US-BRISTOL-MYERS SQUIBB COMPANY-18704874

PATIENT
  Age: 82 Year
  Sex: Female

DRUGS (1)
  1. COUMADIN TABS 5 MG [Suspect]
     Indication: ATRIAL FIBRILLATION
     Dosage: 1 DF = 1/2 OF 5 MG TABS FOR 6 DAYS A WEEK AND 1 TAB ON 7TH DAY

REACTIONS (1)
  - International normalised ratio increased [Unknown]
